FAERS Safety Report 4440585-2 (Version None)
Quarter: 2004Q3

REPORT INFORMATION
  Report Type: 
  Country: None (occurrence: None)
  Receive Date: 20040903
  Receipt Date: 20040823
  Transmission Date: 20050211
  Serious: Yes (Other)
  Sender: FDA-Public Use
  Company Number: JP-ROCHE-378178

PATIENT
  Age: 73 Year
  Sex: Male

DRUGS (7)
  1. PEGASYS [Suspect]
     Route: 058
     Dates: start: 20040204, end: 20040810
  2. WARFARIN SODIUM [Concomitant]
     Indication: AORTIC VALVE REPLACEMENT
     Route: 048
     Dates: start: 19930531
  3. ADALAT [Concomitant]
     Indication: HYPERTENSION
     Route: 048
     Dates: start: 19980113
  4. GASTER [Concomitant]
     Indication: GASTRITIS
     Route: 048
     Dates: start: 20000620
  5. ULCERLMIN [Concomitant]
     Indication: GASTRITIS
     Route: 048
     Dates: start: 20000620
  6. URSO [Concomitant]
     Indication: CHRONIC HEPATITIS
     Route: 048
     Dates: start: 20010206
  7. RESTAMIN [Concomitant]
     Route: 062
     Dates: start: 20040810

REACTIONS (3)
  - BRAIN STEM INFARCTION [None]
  - RASH [None]
  - RASH PRURITIC [None]
